FAERS Safety Report 10450151 (Version 3)
Quarter: 2014Q4

REPORT INFORMATION
  Report Type: Spontaneous
  Country: US (occurrence: US)
  Receive Date: 20140912
  Receipt Date: 20141015
  Transmission Date: 20150528
  Serious: Yes (Other)
  Sender: FDA-Public Use
  Company Number: CHPA2014US011828

PATIENT
  Age: 73 Year
  Sex: Female

DRUGS (3)
  1. VOLTAREN [Suspect]
     Active Substance: DICLOFENAC SODIUM
     Indication: OFF LABEL USE
  2. VOLTAREN [Suspect]
     Active Substance: DICLOFENAC SODIUM
     Indication: ARTHRALGIA
     Dosage: LESS THAN 2 G, BID
     Route: 061
  3. VOLTAREN XR [Suspect]
     Active Substance: DICLOFENAC SODIUM
     Dosage: UNK, ONCE/SINGLE
     Route: 048

REACTIONS (6)
  - Arthralgia [Not Recovered/Not Resolved]
  - Diabetes mellitus [Not Recovered/Not Resolved]
  - Blood cholesterol increased [Recovering/Resolving]
  - Blood pressure increased [Not Recovered/Not Resolved]
  - Skin discolouration [Recovered/Resolved]
  - Drug ineffective for unapproved indication [Unknown]
